FAERS Safety Report 23382642 (Version 1)
Quarter: 2024Q1

REPORT INFORMATION
  Report Type: Spontaneous
  Country: FR (occurrence: FR)
  Receive Date: 20240109
  Receipt Date: 20240109
  Transmission Date: 20240410
  Serious: Yes (Hospitalization)
  Sender: FDA-Public Use
  Company Number: None

PATIENT
  Age: 63 Year
  Sex: Male
  Weight: 70.5 kg

DRUGS (13)
  1. ACYCLOVIR [Suspect]
     Active Substance: ACYCLOVIR
     Indication: Meningitis
     Dosage: UNK
     Route: 042
     Dates: start: 20230930, end: 20231002
  2. AMOXICILLIN [Suspect]
     Active Substance: AMOXICILLIN
     Indication: Meningitis
     Dosage: UNK
     Route: 042
     Dates: start: 20230930, end: 20231002
  3. AMIKACIN [Suspect]
     Active Substance: AMIKACIN
     Indication: Pneumonia
     Dosage: UNK
     Route: 042
     Dates: start: 20231008, end: 20231008
  4. DEXAMETHASONE [Suspect]
     Active Substance: DEXAMETHASONE
     Indication: Meningitis
     Dosage: UNK
     Route: 042
     Dates: start: 20230930, end: 20231002
  5. GENTAMICIN SULFATE [Suspect]
     Active Substance: GENTAMICIN SULFATE
     Indication: Meningitis
     Dosage: UNK
     Route: 042
     Dates: start: 20230930, end: 20231002
  6. MEROPENEM ANHYDROUS [Suspect]
     Active Substance: MEROPENEM ANHYDROUS
     Indication: Pneumonia
     Dosage: UNK
     Route: 042
     Dates: start: 20231015, end: 20231023
  7. SPIRAMYCIN [Suspect]
     Active Substance: SPIRAMYCIN
     Indication: Pneumonia
     Dosage: UNK
     Route: 042
     Dates: start: 20231002, end: 20231003
  8. TAZOBACTAM [Suspect]
     Active Substance: TAZOBACTAM
     Indication: Pneumonia
     Dosage: UNK
     Route: 042
     Dates: start: 20231008, end: 20231015
  9. ALFENTANIL [Concomitant]
     Active Substance: ALFENTANIL
     Indication: Product used for unknown indication
     Dosage: UNK
     Route: 065
  10. FENTANYL [Concomitant]
     Active Substance: FENTANYL\FENTANYL CITRATE
     Indication: Product used for unknown indication
     Dosage: UNK
     Route: 065
  11. MIANSERIN HYDROCHLORIDE [Concomitant]
     Active Substance: MIANSERIN HYDROCHLORIDE
     Indication: Product used for unknown indication
     Dosage: UNK
     Route: 065
  12. ACETAMINOPHEN [Concomitant]
     Active Substance: ACETAMINOPHEN
     Indication: Product used for unknown indication
     Dosage: UNK
     Route: 065
  13. OXAZEPAM [Concomitant]
     Active Substance: OXAZEPAM
     Indication: Product used for unknown indication
     Dosage: UNK
     Route: 065

REACTIONS (1)
  - Clostridium difficile colitis [Recovered/Resolved]

NARRATIVE: CASE EVENT DATE: 20231016
